FAERS Safety Report 6222986-5 (Version None)
Quarter: 2009Q2

REPORT INFORMATION
  Report Type: 
  Country: None (occurrence: None)
  Receive Date: 20090609
  Receipt Date: 20090528
  Transmission Date: 20091009
  Serious: Yes (Life-Threatening, Hospitalization, Other)
  Sender: FDA-Public Use
  Company Number: 2009AP001870

PATIENT
  Age: 48 Year
  Sex: Female

DRUGS (2)
  1. LAMOTRIGINE [Suspect]
     Indication: CONVULSION
     Dosage: 25 MG; QD, PO
     Route: 048
  2. CARBAMAZEPINE [Concomitant]

REACTIONS (10)
  - ALANINE AMINOTRANSFERASE INCREASED [None]
  - DISORIENTATION [None]
  - DRUG RASH WITH EOSINOPHILIA AND SYSTEMIC SYMPTOMS [None]
  - FACE OEDEMA [None]
  - HYPOTENSION [None]
  - MENINGITIS ASEPTIC [None]
  - NEUTROPHILIA [None]
  - OEDEMA PERIPHERAL [None]
  - PHOTOPHOBIA [None]
  - TACHYCARDIA [None]
